FAERS Safety Report 5472237-4 (Version None)
Quarter: 2007Q3

REPORT INFORMATION
  Report Type: 
  Country: None (occurrence: None)
  Receive Date: 20070926
  Receipt Date: 20070913
  Transmission Date: 20080115
  Serious: Yes (Other)
  Sender: FDA-Public Use
  Company Number: 018455

PATIENT
  Age: 30 Year
  Sex: Female

DRUGS (2)
  1. CLARAVIS [Suspect]
     Dosage: 40 MG, QD, ORAL; 40 MG, BID, ORAL
     Route: 048
     Dates: start: 20070119, end: 20070218
  2. CLARAVIS [Suspect]
     Dosage: 40 MG, QD, ORAL; 40 MG, BID, ORAL
     Route: 048
     Dates: start: 20070813, end: 20070820

REACTIONS (4)
  - ABORTION SPONTANEOUS [None]
  - DRUG EXPOSURE DURING PREGNANCY [None]
  - PREGNANCY ON ORAL CONTRACEPTIVE [None]
  - VAGINAL HAEMORRHAGE [None]
